FAERS Safety Report 9521257 (Version 2)
Quarter: 2014Q1

REPORT INFORMATION
  Report Type: Spontaneous
  Country: US (occurrence: None)
  Receive Date: 20130305
  Receipt Date: 20140306
  Transmission Date: 20141002
  Serious: Yes (Hospitalization)
  Sender: FDA-Public Use
  Company Number: 163-21880-12073091

PATIENT
  Age: 46 Year
  Sex: Male
  Weight: 102.4 kg

DRUGS (14)
  1. REVLIMID (LENALIDOMIDE) (CAPSULES) [Suspect]
     Indication: PLASMA CELL MYELOMA
     Dosage: 5 MG, 21 IN 21 D, PO
     Route: 048
     Dates: start: 201102, end: 201208
  2. CELEXA (CITALOPRAM HYDROBROMIDE) (UNKNOWN) [Concomitant]
  3. CLONAZEPAM (CLONAZEPAM) (UNKNOWN) [Concomitant]
  4. ELMA CREAM (OTHER THERAPEUTIC PRODUCTS) (CREAM) [Concomitant]
  5. FLONASE SPRAY (FLUTICASONE PROPIONATE) (UNKNOWN) [Concomitant]
  6. HYDROMORPHONE (HYDROMORPHONE) (UNKNOWN) (HYDROMORPHONE) [Concomitant]
  7. LACTULOSE (LACTULOSE) (UNKNOWN) [Concomitant]
  8. MARINOL (DRONABINOL) (UNKNOWN) [Concomitant]
  9. NATEGLINIDE (NATEGLINIDE) (UNKNOWN) [Concomitant]
  10. NEXIUM (ESOMEPRAZOLE) (UNKNOWN) [Concomitant]
  11. PROCRIT (ERYTHROPOIETIN) (UNKNOWN) [Concomitant]
  12. RENVELA (SEVELAMER CARBONATE) (UNKNOWN) [Concomitant]
  13. SENSIPAR (CINACALCET HYDROCHLORIDE) (UNKNOWN) [Concomitant]
  14. ZOLOFT (SERTRALINE HYDROCHLORIDE) (UNKNOWN) [Concomitant]

REACTIONS (4)
  - Staphylococcal infection [None]
  - Device related infection [None]
  - Nausea [None]
  - Abdominal pain [None]
